FAERS Safety Report 6890630-X (Version None)
Quarter: 2010Q3

REPORT INFORMATION
  Report Type: 
  Country: None (occurrence: None)
  Receive Date: 20100731
  Receipt Date: 20090106
  Transmission Date: 20110219
  Serious: No
  Sender: FDA-Public Use
  Company Number: US-PFIZER INC-2004073806

PATIENT
  Sex: Male
  Weight: 80.3 kg

DRUGS (16)
  1. LIPITOR [Suspect]
     Indication: BLOOD CHOLESTEROL INCREASED
     Dosage: 20 MG, 1X/DAY
     Dates: start: 20040201
  2. GLUCOSAMINE WITH MSM [Concomitant]
     Dosage: UNK
     Route: 048
     Dates: start: 20020101
  3. ALENDRONATE SODIUM [Concomitant]
     Indication: OSTEOPOROSIS
     Route: 048
  4. PRINZIDE [Concomitant]
     Indication: HYPERTENSION
     Route: 048
  5. ACETYLSALICYLIC ACID SRT [Concomitant]
     Route: 048
  6. OS-CAL [Concomitant]
     Route: 048
     Dates: start: 20020101
  7. MULTI-VITAMINS [Concomitant]
     Route: 048
  8. BETACAROTENE [Concomitant]
     Route: 048
  9. LECITHIN [Concomitant]
     Route: 048
  10. NICOTINIC ACID [Concomitant]
     Route: 048
  11. GENERAL NUTRIENTS/MINERALS/VITAMINS [Concomitant]
     Route: 048
  12. B-KOMPLEX ^LECIVA^ [Concomitant]
     Route: 048
  13. ASCORBIC ACID [Concomitant]
     Route: 048
  14. TOCOPHEROL CONCENTRATE CAP [Concomitant]
     Route: 048
  15. ZINC [Concomitant]
     Route: 048
  16. LISINOPRIL [Concomitant]
     Dosage: UNK

REACTIONS (4)
  - BLOOD CHOLESTEROL DECREASED [None]
  - CAROTID ARTERIOSCLEROSIS [None]
  - DRUG INEFFECTIVE [None]
  - WRONG TECHNIQUE IN DRUG USAGE PROCESS [None]
